FAERS Safety Report 10585854 (Version 3)
Quarter: 2015Q1

REPORT INFORMATION
  Report Type: Report from Study
  Country: UY (occurrence: UY)
  Receive Date: 20141114
  Receipt Date: 20150127
  Transmission Date: 20150720
  Serious: Yes (Hospitalization, Other)
  Sender: FDA-Public Use
  Company Number: UY-ABBVIE-14P-168-1306645-00

PATIENT
  Age: 61 Year
  Sex: Male
  Weight: 80 kg

DRUGS (1)
  1. ZEMPLAR [Suspect]
     Active Substance: PARICALCITOL
     Indication: HYPERPARATHYROIDISM SECONDARY
     Route: 065
     Dates: start: 20140401

REACTIONS (6)
  - Joint abscess [Not Recovered/Not Resolved]
  - Tendon disorder [Recovering/Resolving]
  - Device dislocation [Unknown]
  - Tendon disorder [Recovered/Resolved]
  - Fall [Recovering/Resolving]
  - Arthritis infective [Not Recovered/Not Resolved]

NARRATIVE: CASE EVENT DATE: 201408
